FAERS Safety Report 5740879-4 (Version None)
Quarter: 2008Q2

REPORT INFORMATION
  Report Type: 
  Country: None (occurrence: None)
  Receive Date: 20080516
  Receipt Date: 20080421
  Transmission Date: 20081010
  Serious: No
  Sender: FDA-Public Use
  Company Number: US-BOEHRINGER INGELHEIM GMBH, GERMANY-2008-BP-02799BP

PATIENT
  Sex: Female

DRUGS (5)
  1. CATAPRES-TTS-1 [Suspect]
     Indication: HOT FLUSH
     Route: 061
     Dates: start: 20080119, end: 20080124
  2. ZOCOR [Concomitant]
  3. NEXIUM [Concomitant]
  4. CELEXA [Concomitant]
  5. ASPIRIN [Concomitant]

REACTIONS (3)
  - APPLICATION SITE BURN [None]
  - APPLICATION SITE DISCHARGE [None]
  - APPLICATION SITE PRURITUS [None]
